FAERS Safety Report 9473155 (Version 1)
Quarter: 2013Q3

REPORT INFORMATION
  Report Type: Spontaneous
  Country: US (occurrence: US)
  Receive Date: 20130823
  Receipt Date: 20130823
  Transmission Date: 20140515
  Serious: No
  Sender: FDA-Public Use
  Company Number: US-BRISTOL-MYERS SQUIBB COMPANY-18702100

PATIENT
  Age: 31 Year
  Sex: Male

DRUGS (1)
  1. SPRYCEL [Suspect]
     Dosage: DOSE LOWERED LAST WEEK
     Dates: start: 20130128

REACTIONS (4)
  - Apathy [Unknown]
  - Depressed mood [Unknown]
  - Feeling abnormal [Unknown]
  - Drug dose omission [Unknown]
